FAERS Safety Report 7492670-9 (Version None)
Quarter: 2011Q2

REPORT INFORMATION
  Report Type: 
  Country: None (occurrence: None)
  Receive Date: 20110519
  Receipt Date: 20110512
  Transmission Date: 20111010
  Serious: Yes (Hospitalization, Other)
  Sender: FDA-Public Use
  Company Number: US-US-EMD SERONO, INC.-7054978

PATIENT
  Sex: Female

DRUGS (9)
  1. VITAMIN B-12 [Concomitant]
     Indication: VITAMIN B12 DEFICIENCY
  2. OMEPRAZOLE [Concomitant]
     Indication: GASTROOESOPHAGEAL REFLUX DISEASE
  3. FERROUS SULFATE TAB [Concomitant]
     Indication: SUPPLEMENTATION THERAPY
  4. VITAMIN D [Concomitant]
     Indication: VITAMIN D DEFICIENCY
  5. REBIF [Suspect]
     Indication: MULTIPLE SCLEROSIS
     Route: 058
     Dates: start: 20110119
  6. SYNTHROID [Concomitant]
     Indication: AUTOIMMUNE THYROIDITIS
  7. CLONAZEPAM [Concomitant]
     Indication: RESTLESS LEGS SYNDROME
  8. TIZANIDINE HCL [Concomitant]
     Indication: NECK PAIN
  9. REQUIP [Concomitant]
     Indication: RESTLESS LEGS SYNDROME

REACTIONS (5)
  - INFLUENZA LIKE ILLNESS [None]
  - MAGNESIUM DEFICIENCY [None]
  - CALCIUM DEFICIENCY [None]
  - INJECTION SITE URTICARIA [None]
  - AUTOIMMUNE THYROIDITIS [None]
